FAERS Safety Report 5285979-0 (Version None)
Quarter: 2007Q2

REPORT INFORMATION
  Report Type: 
  Country: None (occurrence: None)
  Receive Date: 20070404
  Receipt Date: 20070330
  Transmission Date: 20071010
  Serious: Yes (Death, Hospitalization, Other)
  Sender: FDA-Public Use
  Company Number: 11932613

PATIENT
  Age: 65 Year
  Sex: Male

DRUGS (9)
  1. PRAVASTATIN SODIUM [Suspect]
     Indication: HYPERCHOLESTEROLAEMIA
  2. ZOCOR [Suspect]
     Indication: HYPERCHOLESTEROLAEMIA
     Dosage: STARTED AT 10 MG 6 MONTHS BEFORE ADMISSION; ONE MONTH BEFORE ADMISSION INCREASED TO 20 MG.
     Dates: start: 20000501, end: 20001030
  3. ASPIRIN [Concomitant]
     Indication: MYOCARDIAL ISCHAEMIA
     Route: 048
     Dates: start: 19940101, end: 20000101
  4. ATENOLOL [Concomitant]
     Indication: MYOCARDIAL ISCHAEMIA
     Route: 048
     Dates: start: 19940101, end: 20000101
  5. ATENOLOL [Concomitant]
     Indication: MYOCARDIAL INFARCTION
     Route: 048
     Dates: start: 19940101, end: 20000101
  6. ENALAPRIL MALEATE [Concomitant]
     Indication: MYOCARDIAL INFARCTION
     Route: 048
     Dates: start: 19940101, end: 20001104
  7. CIMETIDINE HCL [Concomitant]
     Indication: GASTROOESOPHAGEAL REFLUX DISEASE
     Dates: start: 20000101
  8. CIPROFLOXACIN [Concomitant]
  9. RAMIPRIL [Concomitant]

REACTIONS (5)
  - COLITIS ULCERATIVE [None]
  - MEGACOLON [None]
  - MULTI-ORGAN FAILURE [None]
  - PERITONITIS [None]
  - SEPTIC SHOCK [None]
